FAERS Safety Report 21210690 (Version 2)
Quarter: 2022Q3

REPORT INFORMATION
  Report Type: Spontaneous
  Country: JP (occurrence: JP)
  Receive Date: 20220815
  Receipt Date: 20220901
  Transmission Date: 20221027
  Serious: Yes (Hospitalization, Other)
  Sender: FDA-Public Use
  Company Number: JP-ALXN-A202019189AA

PATIENT
  Age: 35 Year
  Sex: Female
  Weight: 55 kg

DRUGS (5)
  1. SOLIRIS [Suspect]
     Active Substance: ECULIZUMAB
     Indication: Paroxysmal nocturnal haemoglobinuria
     Dosage: 600 MG, QW
     Route: 042
     Dates: start: 20110506, end: 20110527
  2. SOLIRIS [Suspect]
     Active Substance: ECULIZUMAB
     Dosage: 900 MG, Q2W
     Route: 042
     Dates: start: 20110603
  3. HEPARIN CALCIUM [Concomitant]
     Active Substance: HEPARIN CALCIUM
     Indication: Paroxysmal nocturnal haemoglobinuria
     Dosage: 5000 IU, BID
     Route: 058
     Dates: start: 20200901, end: 20201220
  4. HEPARIN CALCIUM [Concomitant]
     Active Substance: HEPARIN CALCIUM
     Dosage: 5000 IU, TID
     Route: 058
     Dates: start: 20201221, end: 20210413
  5. HEPARIN SODIUM [Concomitant]
     Active Substance: HEPARIN SODIUM
     Indication: Paroxysmal nocturnal haemoglobinuria
     Dosage: 15000 IU, QD
     Route: 041
     Dates: start: 20210414, end: 20210419

REACTIONS (6)
  - Nonreassuring foetal heart rate pattern [Recovered/Resolved]
  - Uterine leiomyoma [Recovering/Resolving]
  - Abdominal pain lower [Recovering/Resolving]
  - Exposure during pregnancy [Unknown]
  - Maternal exposure during breast feeding [Unknown]
  - Total complement activity increased [Recovered/Resolved]

NARRATIVE: CASE EVENT DATE: 20201205
